FAERS Safety Report 8344676-5 (Version None)
Quarter: 2012Q2

REPORT INFORMATION
  Report Type: 
  Country: None (occurrence: None)
  Receive Date: 20120508
  Receipt Date: 20120501
  Transmission Date: 20120825
  Serious: Yes (Other)
  Sender: FDA-Public Use
  Company Number: US-BAYER-2012-036004

PATIENT
  Age: 42 Year
  Sex: Female
  Weight: 120 kg

DRUGS (22)
  1. PAXIL CR [Concomitant]
     Dosage: 25 MG, QD
  2. TRASYLOL [Suspect]
     Indication: TRICUSPID VALVE REPLACEMENT
     Dosage: 600 CC
     Dates: start: 20060526
  3. TAMACOR [Concomitant]
     Dosage: 75 MG, BID
  4. FORANE [Concomitant]
     Dosage: UNK
     Dates: start: 20060526, end: 20060526
  5. PAVULON [Concomitant]
     Dosage: UNK
     Dates: start: 20060526, end: 20060526
  6. TOPROL-XL [Concomitant]
     Dosage: 50 MG, QD
  7. LASIX [Concomitant]
     Dosage: 500 MG, UNK
     Dates: start: 20060529
  8. SYNTHROID [Concomitant]
     Dosage: 0.2 MG, QD
  9. VECURONIUM BROMIDE [Concomitant]
     Dosage: UNK
     Dates: start: 20060526, end: 20060526
  10. PLATELETS [Concomitant]
     Dosage: 1 U, UNK
  11. TRASYLOL [Suspect]
     Indication: STERNOTOMY
     Dosage: 10000 KIU, UNK
     Route: 042
     Dates: start: 20060526
  12. COUMADIN [Concomitant]
     Dosage: 5 MG, QD
  13. FENTANYL [Concomitant]
     Dosage: UNK
     Dates: start: 20060526, end: 20060526
  14. LASIX [Concomitant]
     Dosage: 160 MG, QD
  15. FRESH FROZEN PLASMA [Concomitant]
     Dosage: 3 U, UNK
     Route: 042
  16. VERSED [Concomitant]
     Dosage: UNK
     Dates: start: 20060526, end: 20060526
  17. HEPARIN [Concomitant]
     Dosage: UNK
     Dates: start: 20060526, end: 20060526
  18. ZAROXOLYN [Concomitant]
     Dosage: UNK
     Dates: start: 20060529
  19. DOBUTAMINE HCL [Concomitant]
     Dosage: UNK
     Dates: start: 20060529
  20. PROTAMINE SULFATE [Concomitant]
     Dosage: UNK
     Dates: start: 20060526, end: 20060526
  21. MANNITOL [Concomitant]
     Dosage: UNK
     Dates: start: 20060526, end: 20060526
  22. EPOGEN [Concomitant]

REACTIONS (6)
  - RENAL TUBULAR NECROSIS [None]
  - DEPRESSION [None]
  - RENAL FAILURE ACUTE [None]
  - ACUTE RESPIRATORY FAILURE [None]
  - ACUTE RESPIRATORY DISTRESS SYNDROME [None]
  - RENAL FAILURE [None]
